FAERS Safety Report 6267198-4 (Version None)
Quarter: 2009Q3

REPORT INFORMATION
  Report Type: 
  Country: None (occurrence: None)
  Receive Date: 20090714
  Receipt Date: 20090616
  Transmission Date: 20100115
  Serious: No
  Sender: FDA-Public Use
  Company Number: US-BAYER-200911840BCC

PATIENT
  Age: 76 Year
  Sex: Male
  Weight: 69 kg

DRUGS (7)
  1. ALEVE (CAPLET) [Suspect]
     Indication: ARTHRITIS
     Dosage: UNIT DOSE: 220 MG
     Route: 048
     Dates: start: 20090612
  2. METFORMIN HCL [Concomitant]
     Route: 065
  3. FLOMAX [Concomitant]
     Route: 065
  4. VITAMIN E [Concomitant]
     Route: 065
  5. VITAMIN B-12 [Concomitant]
     Route: 065
  6. UNKNOWN MULTIVITAMIN [Concomitant]
     Route: 065
  7. SAW PALMETTO [Concomitant]
     Route: 065

REACTIONS (7)
  - DYSSTASIA [None]
  - JOINT SWELLING [None]
  - MUSCULOSKELETAL PAIN [None]
  - PAIN IN EXTREMITY [None]
  - PRURITUS [None]
  - SLEEP DISORDER [None]
  - URTICARIA [None]
